FAERS Safety Report 5191898-0 (Version None)
Quarter: 2006Q4

REPORT INFORMATION
  Report Type: 
  Country: None (occurrence: None)
  Receive Date: 20061227
  Receipt Date: 20060929
  Transmission Date: 20070319
  Serious: Yes (Other)
  Sender: FDA-Public Use
  Company Number: PHNU2006DE03302

PATIENT
  Age: 20 Year
  Sex: Male
  Weight: 89.5 kg

DRUGS (3)
  1. LEPONEX [Suspect]
     Dosage: 100 MG/DAY
     Route: 048
     Dates: start: 20060918, end: 20060930
  2. LEPONEX [Suspect]
     Dosage: UP TO 100 MG/DAY
     Route: 048
     Dates: start: 20061003, end: 20061010
  3. HALDOL [Concomitant]
     Dosage: 10 MG/DAY

REACTIONS (9)
  - C-REACTIVE PROTEIN INCREASED [None]
  - CHEST PAIN [None]
  - EOSINOPHILIA [None]
  - FATIGUE [None]
  - HYPERTHERMIA [None]
  - PERICARDIAL EFFUSION [None]
  - POLYSEROSITIS [None]
  - ULTRASOUND ABDOMEN ABNORMAL [None]
  - URINARY RETENTION [None]
